FAERS Safety Report 6754568-0 (Version None)
Quarter: 2010Q2

REPORT INFORMATION
  Report Type: 
  Country: None (occurrence: None)
  Receive Date: 20100601
  Receipt Date: 20100524
  Transmission Date: 20101027
  Serious: Yes (Hospitalization, Other)
  Sender: FDA-Public Use
  Company Number: 2009SP017431

PATIENT
  Age: 31 Year
  Sex: Female

DRUGS (2)
  1. NUVARING [Suspect]
     Indication: CONTRACEPTION
     Dosage: ; QM; VAG
     Route: 067
     Dates: start: 20051001, end: 20060901
  2. HYDROCODONE BITARTRATE AND ACETAMINOPHEN [Concomitant]

REACTIONS (19)
  - DYSMENORRHOEA [None]
  - ECCHYMOSIS [None]
  - HEADACHE [None]
  - IMPAIRED HEALING [None]
  - INCISION SITE INFECTION [None]
  - LIPOMA [None]
  - MALIGNANT MELANOMA [None]
  - MEDICAL DEVICE SITE REACTION [None]
  - MENORRHAGIA [None]
  - NEOPLASM PROGRESSION [None]
  - PAIN [None]
  - PARONYCHIA [None]
  - PELVIC FLOOR MUSCLE WEAKNESS [None]
  - PLANTAR FASCIITIS [None]
  - PROTEIN S DECREASED [None]
  - PULMONARY EMBOLISM [None]
  - SCAR [None]
  - SEBORRHOEIC DERMATITIS [None]
  - UTERINE PROLAPSE [None]
